FAERS Safety Report 19917523 (Version 1)
Quarter: 2021Q4

REPORT INFORMATION
  Report Type: Spontaneous
  Country: CZ (occurrence: CZ)
  Receive Date: 20211005
  Receipt Date: 20211005
  Transmission Date: 20220303
  Serious: Yes (Other)
  Sender: FDA-Public Use
  Company Number: CZ-SUN PHARMACEUTICAL INDUSTRIES LTD-2021RR-313499

PATIENT
  Age: 66 Year
  Sex: Male

DRUGS (8)
  1. BORTEZOMIB [Suspect]
     Active Substance: BORTEZOMIB
     Indication: Plasmacytosis
     Dosage: 5 CYCLES
     Route: 065
     Dates: start: 201712, end: 201804
  2. LENALIDOMIDE [Suspect]
     Active Substance: LENALIDOMIDE
     Indication: Plasmacytosis
     Dosage: 3 CYCLES
     Route: 065
  3. MELPHALAN [Suspect]
     Active Substance: MELPHALAN
     Indication: Product used for unknown indication
     Dosage: 65 MILLIGRAM/SQ. METER
     Route: 065
  4. MELPHALAN [Suspect]
     Active Substance: MELPHALAN
     Dosage: 65 MILLIGRAM/SQ. METER
     Route: 065
     Dates: start: 202008
  5. DEXAMETHASONE [Suspect]
     Active Substance: DEXAMETHASONE
     Indication: Plasmacytosis
     Dosage: 5 CYCLES
     Route: 065
     Dates: start: 201712, end: 201804
  6. DEXAMETHASONE [Suspect]
     Active Substance: DEXAMETHASONE
     Dosage: UNK
     Route: 065
  7. CYCLOPHOSPHAMIDE [Suspect]
     Active Substance: CYCLOPHOSPHAMIDE
     Indication: Plasmacytosis
     Dosage: 5 CYCLES
     Route: 065
     Dates: start: 201712, end: 201804
  8. DARATUMUMAB [Suspect]
     Active Substance: DARATUMUMAB
     Indication: Product used for unknown indication
     Dosage: UNK
     Route: 065

REACTIONS (5)
  - Disease recurrence [Unknown]
  - Blood creatinine increased [Unknown]
  - Therapeutic product effect incomplete [Unknown]
  - Disease progression [Unknown]
  - Condition aggravated [Unknown]
